FAERS Safety Report 9516986 (Version 1)
Quarter: 2013Q3

REPORT INFORMATION
  Report Type: Spontaneous
  Country: PL (occurrence: PL)
  Receive Date: 20130911
  Receipt Date: 20130911
  Transmission Date: 20140515
  Serious: Yes (Hospitalization)
  Sender: FDA-Public Use
  Company Number: PL-BAXTER-2013BAX035539

PATIENT
  Age: 54 Year
  Sex: Male

DRUGS (3)
  1. NAVELBINE [Suspect]
     Indication: PRODUCT USED FOR UNKNOWN INDICATION
     Route: 042
  2. NAVELBINE [Suspect]
     Route: 042
     Dates: start: 20121204, end: 20121204
  3. SODIUM CHLORIDE 0.9% [Suspect]
     Indication: PRODUCT USED FOR UNKNOWN INDICATION
     Route: 042
     Dates: end: 20121204

REACTIONS (2)
  - Oedema peripheral [Unknown]
  - Pain in extremity [Unknown]
